FAERS Safety Report 7942271-0 (Version None)
Quarter: 2011Q4

REPORT INFORMATION
  Report Type: 
  Country: None (occurrence: None)
  Receive Date: 20111128
  Receipt Date: 20111106
  Transmission Date: 20120403
  Serious: No
  Sender: FDA-Public Use
  Company Number: US-ABBOTT-11P-163-0872248-00

PATIENT

DRUGS (2)
  1. ANDROGEL [Suspect]
     Indication: PRODUCT USED FOR UNKNOWN INDICATION
     Dosage: 4 PUMPS DAILY
  2. ANDROGEL [Suspect]
     Dosage: 1% PUMP

REACTIONS (2)
  - BLOOD TESTOSTERONE DECREASED [None]
  - NONSPECIFIC REACTION [None]
